FAERS Safety Report 4518472-0 (Version None)
Quarter: 2004Q4

REPORT INFORMATION
  Report Type: 
  Country: None (occurrence: None)
  Receive Date: 20041201
  Receipt Date: 20041115
  Transmission Date: 20050328
  Serious: Yes (Hospitalization)
  Sender: FDA-Public Use
  Company Number: 104605ISR

PATIENT
  Age: 48 Year
  Sex: Male

DRUGS (5)
  1. METHOTREXATE [Suspect]
     Indication: BURKITT'S LYMPHOMA
     Dosage: 14 GRAM
     Route: 042
     Dates: start: 20040418, end: 20040418
  2. VINCRISTINE [Suspect]
     Indication: BURKITT'S LYMPHOMA
  3. CYCLOPHOSPHAMIDE [Suspect]
     Indication: BURKITT'S LYMPHOMA
     Dosage: 900 MILLIGRAM
  4. DOXORUBICIN HYDROCHLORIDE [Suspect]
     Indication: BURKITT'S LYMPHOMA
     Dosage: 100 MILLIGRAM
  5. METHYLPREDNISOLONE SODIUM SUCCINATE [Suspect]
     Indication: BURKITT'S LYMPHOMA

REACTIONS (3)
  - BONE MARROW DEPRESSION [None]
  - DRUG CLEARANCE DECREASED [None]
  - RENAL FAILURE ACUTE [None]
